FAERS Safety Report 6550550-7 (Version None)
Quarter: 2010Q1

REPORT INFORMATION
  Report Type: 
  Country: None (occurrence: None)
  Receive Date: 20100122
  Receipt Date: 20100122
  Transmission Date: 20100710
  Serious: Yes (Other)
  Sender: FDA-Public Use
  Company Number: None

PATIENT
  Age: 19 Month
  Sex: Female
  Weight: 10.4327 kg

DRUGS (2)
  1. MOTRIN [Suspect]
     Indication: PYREXIA
     Dosage: 1/2 TABLE 8 HOURS PO
     Route: 048
     Dates: start: 20100117, end: 20100119
  2. TYLENOL (CAPLET) [Suspect]
     Indication: PYREXIA
     Dosage: 1 TABLET 4 HOURS PO
     Route: 048
     Dates: start: 20100118, end: 20100119

REACTIONS (3)
  - DIARRHOEA [None]
  - NAUSEA [None]
  - VOMITING [None]
